FAERS Safety Report 9995354 (Version 1)
Quarter: 2014Q1

REPORT INFORMATION
  Report Type: Spontaneous
  Country: US (occurrence: None)
  Receive Date: 20140214
  Receipt Date: 20140214
  Transmission Date: 20141002
  Serious: Yes (Other)
  Sender: FDA-Public Use
  Company Number: US-013540

PATIENT
  Age: 58 Year
  Sex: Male

DRUGS (3)
  1. PICO-SALAX [Suspect]
     Indication: BOWEL PREPARATION
     Dosage: TOOK FIRST DOSE AT 7PM AND SECOND DOSE EARLY AT 1030PM
     Dates: start: 20131104, end: 20131104
  2. PLAVIX [Concomitant]
  3. STARLIX [Concomitant]

REACTIONS (5)
  - Feeling cold [None]
  - Heart rate increased [None]
  - Malaise [None]
  - Blood glucose increased [None]
  - Drug ineffective [None]
